FAERS Safety Report 4723429-0 (Version None)
Quarter: 2005Q3

REPORT INFORMATION
  Report Type: 
  Country: None (occurrence: None)
  Receive Date: 20050725
  Receipt Date: 20050720
  Transmission Date: 20060218
  Serious: Yes (Life-Threatening)
  Sender: FDA-Public Use
  Company Number: 2005AP04010

PATIENT
  Age: 14 Year
  Sex: Female

DRUGS (4)
  1. DIPRIVAN [Suspect]
     Indication: ANAESTHESIA
  2. VECURONIUM BROMIDE [Concomitant]
  3. NITROUS OXIDE [Concomitant]
     Indication: ANAESTHESIA
     Route: 055
  4. SEVOFLURANE [Concomitant]
     Indication: ANAESTHESIA
     Route: 055

REACTIONS (6)
  - ACIDOSIS [None]
  - HEPATIC FUNCTION ABNORMAL [None]
  - HYPERKALAEMIA [None]
  - HYPERTHERMIA MALIGNANT [None]
  - RENAL IMPAIRMENT [None]
  - TACHYCARDIA [None]
